FAERS Safety Report 11364338 (Version 1)
Quarter: 2015Q3

REPORT INFORMATION
  Report Type: Spontaneous
  Country: US (occurrence: None)
  Receive Date: 20150810
  Receipt Date: 20150810
  Transmission Date: 20151125
  Serious: Yes (Other)
  Sender: FDA-Public Use
  Company Number: None

PATIENT
  Age: 73 Year
  Sex: Female
  Weight: 83.92 kg

DRUGS (7)
  1. COLSRYSL [Concomitant]
  2. METFORMIN [Concomitant]
     Active Substance: METFORMIN HYDROCHLORIDE
  3. TOPROL XL [Concomitant]
     Active Substance: METOPROLOL SUCCINATE
  4. ZYLOPRIM [Concomitant]
     Active Substance: ALLOPURINOL
  5. VITAMIN D [Concomitant]
     Active Substance: CHOLECALCIFEROL
  6. RABEPRAZOLE SOD DR TABS 20 MG AVKARE [Suspect]
     Active Substance: RABEPRAZOLE SODIUM
     Indication: IRRITABLE BOWEL SYNDROME
     Route: 048
  7. SYNTHROID [Concomitant]
     Active Substance: LEVOTHYROXINE SODIUM

REACTIONS (2)
  - Drug ineffective [None]
  - Product substitution issue [None]
